FAERS Safety Report 11835687 (Version 1)
Quarter: 2015Q4

REPORT INFORMATION
  Report Type: Report from Study
  Country: NL (occurrence: NL)
  Receive Date: 20151215
  Receipt Date: 20151215
  Transmission Date: 20160305
  Serious: Yes (Death, Other)
  Sender: FDA-Public Use
  Company Number: NL-AMGEN-NLDSL2015132380

PATIENT
  Age: 84 Year
  Sex: Male

DRUGS (1)
  1. XGEVA [Suspect]
     Active Substance: DENOSUMAB
     Indication: PRODUCT USED FOR UNKNOWN INDICATION
     Dosage: 120 MG (70 MG/ML, 1.7 ML), Q4WK
     Route: 058
     Dates: start: 20150513

REACTIONS (1)
  - Death [Fatal]

NARRATIVE: CASE EVENT DATE: 20150609
